FAERS Safety Report 6131146-8 (Version None)
Quarter: 2009Q1

REPORT INFORMATION
  Report Type: 
  Country: None (occurrence: None)
  Receive Date: 20090325
  Receipt Date: 20090310
  Transmission Date: 20090719
  Serious: Yes (Death)
  Sender: FDA-Public Use
  Company Number: US-PFIZER INC-2008003093

PATIENT
  Age: 20 Year
  Sex: Male

DRUGS (6)
  1. ALPRAZOLAM [Suspect]
     Route: 048
  2. PREGABALIN [Suspect]
     Route: 048
  3. ESZOPICLONE [Suspect]
     Route: 048
  4. RAMELTEON [Suspect]
     Route: 048
  5. VENLAFAXINE HCL [Suspect]
     Route: 048
  6. VALPROIC ACID [Suspect]
     Route: 048

REACTIONS (4)
  - CARDIAC ARREST [None]
  - COMPLETED SUICIDE [None]
  - DRUG ABUSE [None]
  - RESPIRATORY ARREST [None]
